FAERS Safety Report 5406587-4 (Version None)
Quarter: 2007Q3

REPORT INFORMATION
  Report Type: 
  Country: None (occurrence: None)
  Receive Date: 20070806
  Receipt Date: 20070725
  Transmission Date: 20080115
  Serious: Yes (Other)
  Sender: FDA-Public Use
  Company Number: US-PFIZER INC-2007061876

PATIENT
  Sex: Male

DRUGS (2)
  1. DILANTIN [Suspect]
  2. ALCOHOL [Suspect]

REACTIONS (1)
  - CONVULSION [None]
